FAERS Safety Report 7212886-6 (Version None)
Quarter: 2011Q1

REPORT INFORMATION
  Report Type: 
  Country: None (occurrence: None)
  Receive Date: 20110106
  Receipt Date: 20110104
  Transmission Date: 20110831
  Serious: Yes (Death, Hospitalization, Other)
  Sender: FDA-Public Use
  Company Number: PHHY2011BR00543

PATIENT
  Sex: Female
  Weight: 62 kg

DRUGS (2)
  1. CONTRAST MEDIA [Suspect]
  2. EXELON [Suspect]
     Indication: DEMENTIA ALZHEIMER'S TYPE
     Dosage: 1 PATCH PER DAY
     Route: 062
     Dates: start: 20100801

REACTIONS (3)
  - INFARCTION [None]
  - THROMBOSIS [None]
  - RENAL IMPAIRMENT [None]
